FAERS Safety Report 15307539 (Version 1)
Quarter: 2018Q3

REPORT INFORMATION
  Report Type: Spontaneous
  Country: US (occurrence: US)
  Receive Date: 20180822
  Receipt Date: 20180822
  Transmission Date: 20181010
  Serious: No
  Sender: FDA-Public Use
  Company Number: US-NOVAST LABORATORIES, LTD-US-2017NOV000062

PATIENT
  Sex: Female

DRUGS (1)
  1. JULEBER [Suspect]
     Active Substance: DESOGESTREL\ETHINYL ESTRADIOL
     Indication: PRODUCT USED FOR UNKNOWN INDICATION
     Dosage: 0.15 MG/0.03 MG, QD
     Route: 048

REACTIONS (2)
  - Product quality issue [Unknown]
  - Product use issue [Unknown]
